FAERS Safety Report 10692495 (Version 1)
Quarter: 2015Q1

REPORT INFORMATION
  Report Type: Spontaneous
  Country: US (occurrence: None)
  Receive Date: 20150105
  Receipt Date: 20150105
  Transmission Date: 20150720
  Serious: Yes (Disabling)
  Sender: FDA-Public Use
  Company Number: None

PATIENT
  Age: 53 Year
  Sex: Female
  Weight: 66 kg

DRUGS (11)
  1. NOREPINEPHRINE DRIP [Concomitant]
  2. HEPARIN [Suspect]
     Active Substance: HEPARIN SODIUM
  3. ZOSYN [Concomitant]
     Active Substance: PIPERACILLIN SODIUM\TAZOBACTAM SODIUM
  4. DIALYSATE [Concomitant]
  5. CEFAZOLIN [Concomitant]
     Active Substance: CEFAZOLIN
  6. METRONIDAZOLE. [Concomitant]
     Active Substance: METRONIDAZOLE
  7. PROPOFOL. [Concomitant]
     Active Substance: PROPOFOL
  8. HEPARIN [Concomitant]
     Active Substance: HEPARIN SODIUM
  9. INSULIN [Concomitant]
     Active Substance: INSULIN NOS
  10. HYDROCORTISONE. [Concomitant]
     Active Substance: HYDROCORTISONE
  11. VANCOMYCIN [Concomitant]
     Active Substance: VANCOMYCIN

REACTIONS (4)
  - Drug hypersensitivity [None]
  - Disseminated intravascular coagulation [None]
  - Heparin-induced thrombocytopenia [None]
  - Amputation [None]

NARRATIVE: CASE EVENT DATE: 20131110
